FAERS Safety Report 5356822-6 (Version None)
Quarter: 2007Q2

REPORT INFORMATION
  Report Type: 
  Country: None (occurrence: None)
  Receive Date: 20070614
  Receipt Date: 20070219
  Transmission Date: 20071010
  Serious: No
  Sender: FDA-Public Use
  Company Number: US-ASTRAZENECA-2007UW03212

PATIENT
  Age: 85 Year
  Sex: Female
  Weight: 44.5 kg

DRUGS (2)
  1. ATACAND [Suspect]
     Indication: HYPERTENSION
     Route: 048
     Dates: start: 20070201
  2. MULTI-VITAMIN [Concomitant]

REACTIONS (1)
  - HYPERACUSIS [None]
